FAERS Safety Report 4875164-6 (Version None)
Quarter: 2006Q1

REPORT INFORMATION
  Report Type: 
  Country: None (occurrence: None)
  Receive Date: 20060104
  Receipt Date: 20051129
  Transmission Date: 20060701
  Serious: Yes (Hospitalization, Other)
  Sender: FDA-Public Use
  Company Number: 2005129707

PATIENT
  Age: 65 Year
  Sex: Male
  Weight: 102.5129 kg

DRUGS (7)
  1. SPIRONOLACTONE [Suspect]
     Indication: CARDIAC FAILURE CONGESTIVE
     Dosage: 160 MG (80 MG, BID), ORAL
     Route: 048
     Dates: start: 20000101, end: 20050101
  2. LASIX [Suspect]
     Indication: CARDIAC FAILURE CONGESTIVE
     Dosage: 80 MG (80 MG, QD), ORAL
     Route: 048
     Dates: start: 20000101
  3. SYNTHROID [Concomitant]
  4. AMILORIDE (AMILORIDE) [Concomitant]
  5. AMARYL [Concomitant]
  6. POTASSIUM (POTASSIUM) [Concomitant]
  7. DIGOXIN [Concomitant]

REACTIONS (4)
  - ARRHYTHMIA [None]
  - BLOOD POTASSIUM DECREASED [None]
  - EMOTIONAL DISORDER [None]
  - GYNAECOMASTIA [None]
